FAERS Safety Report 4614387-8 (Version None)
Quarter: 2005Q2

REPORT INFORMATION
  Report Type: 
  Country: None (occurrence: None)
  Receive Date: 20050307
  Receipt Date: 20050126
  Transmission Date: 20051028
  Serious: No
  Sender: FDA-Public Use
  Company Number: US_0502111762

PATIENT
  Sex: Female

DRUGS (4)
  1. ALIMITA (PEMETREXED) [Suspect]
     Dates: start: 20050120
  2. FOLIC ACID [Concomitant]
  3. VITAMIN B-12 [Concomitant]
  4. DECADRON [Concomitant]

REACTIONS (3)
  - NAUSEA [None]
  - PIGMENTED NAEVUS [None]
  - RASH PRURITIC [None]
